FAERS Safety Report 18658786 (Version 6)
Quarter: 2022Q3

REPORT INFORMATION
  Report Type: Spontaneous
  Country: GB (occurrence: GB)
  Receive Date: 20201224
  Receipt Date: 20220915
  Transmission Date: 20221027
  Serious: Yes (Other)
  Sender: FDA-Public Use
  Company Number: GB-BIOVITRUM-2020GB7887

PATIENT
  Age: 54 Year
  Sex: Male

DRUGS (42)
  1. ORFADIN [Suspect]
     Active Substance: NITISINONE
     Indication: Alkaptonuria
     Dosage: 2 MG
     Dates: start: 2013
  2. ORFADIN [Suspect]
     Active Substance: NITISINONE
     Dosage: 2 MG
     Dates: start: 2014
  3. ORFADIN [Suspect]
     Active Substance: NITISINONE
     Dosage: 2 MG
     Dates: start: 2015
  4. ORFADIN [Suspect]
     Active Substance: NITISINONE
     Dosage: 2 MG
     Dates: start: 2016
  5. ORFADIN [Suspect]
     Active Substance: NITISINONE
     Dosage: 2 MG
     Dates: start: 2017
  6. ORFADIN [Suspect]
     Active Substance: NITISINONE
     Dosage: 2 MG
     Dates: start: 2018
  7. ORFADIN [Suspect]
     Active Substance: NITISINONE
     Dosage: 2 MG
     Dates: start: 2019
  8. ORFADIN [Suspect]
     Active Substance: NITISINONE
     Dosage: 2 MG
     Dates: start: 2020
  9. MINOXIDIL [Concomitant]
     Active Substance: MINOXIDIL
     Dosage: 10 MG
     Dates: start: 2013
  10. BENDROFLUMETHIAZIDE [Concomitant]
     Active Substance: BENDROFLUMETHIAZIDE
     Dosage: 2.5 MG
     Dates: start: 2013
  11. BENDROFLUMETHIAZIDE [Concomitant]
     Active Substance: BENDROFLUMETHIAZIDE
     Dates: start: 2015
  12. CYANOCOBALAMIN [Concomitant]
     Active Substance: CYANOCOBALAMIN
     Dosage: 50 MICROGRAM
     Dates: start: 2013
  13. CHOLECALCIFEROL [Concomitant]
     Active Substance: CHOLECALCIFEROL
     Dates: start: 2013, end: 2015
  14. PREGABALIN [Concomitant]
     Active Substance: PREGABALIN
     Dosage: 300 MG
     Dates: start: 2013
  15. PREGABALIN [Concomitant]
     Active Substance: PREGABALIN
     Dosage: 225 MG
     Dates: start: 2015
  16. OXYCODONE [Concomitant]
     Active Substance: OXYCODONE
     Dosage: 30 MG
     Dates: start: 2013
  17. BENDROFLUMETHIAZIDE [Concomitant]
     Active Substance: BENDROFLUMETHIAZIDE
     Dates: start: 2014
  18. ALENDRONIC ACID [Concomitant]
     Active Substance: ALENDRONIC ACID
     Dosage: 70 MG
     Dates: start: 2015, end: 2018
  19. ASCORBIC ACID [Concomitant]
     Active Substance: ASCORBIC ACID
     Dosage: 1000 MG
     Dates: start: 2015
  20. ASCORBIC ACID [Concomitant]
     Active Substance: ASCORBIC ACID
     Dosage: 500 MG
     Dates: start: 2016
  21. CYNOCOBALAMIN [Concomitant]
     Dosage: 50 MG
  22. TAMSULOSIN [Concomitant]
     Active Substance: TAMSULOSIN
     Dosage: 400 MG
     Dates: start: 2015
  23. AMITRIPTYLINE [Concomitant]
     Active Substance: AMITRIPTYLINE
     Dosage: 50 MG
     Dates: start: 2015
  24. ACETAMINOPHEN [Concomitant]
     Active Substance: ACETAMINOPHEN
     Dosage: 500 MG
     Dates: start: 2015
  25. CALCIUM CARBONATE\CHOLECALCIFEROL [Concomitant]
     Active Substance: CALCIUM CARBONATE\CHOLECALCIFEROL
     Dates: start: 2016
  26. VITAMIN D [Concomitant]
     Active Substance: VITAMIN D NOS
     Dates: start: 2016
  27. FOLIC ACID [Concomitant]
     Active Substance: FOLIC ACID
     Dosage: 5 MG
     Dates: start: 2016, end: 2019
  28. OMEPRAZOLE [Concomitant]
     Active Substance: OMEPRAZOLE
     Dosage: 20 MG
     Dates: start: 2016
  29. LIDOCAINE [Concomitant]
     Active Substance: LIDOCAINE
     Dosage: 5 PERCENT
     Dates: start: 2015
  30. RANITIDINE HYDROCHLORIDE [Concomitant]
     Active Substance: RANITIDINE HYDROCHLORIDE
     Dates: start: 2017
  31. TYR RED COOLER [Concomitant]
     Dates: start: 2017, end: 2019
  32. CETRABEN [Concomitant]
     Dates: start: 2018
  33. MEBEVERINE [Concomitant]
     Active Substance: MEBEVERINE
     Dosage: 135 MG
     Dates: start: 2019
  34. PIROXICAM [Concomitant]
     Active Substance: PIROXICAM
     Dates: start: 2013
  35. FLUOXETINE [Concomitant]
     Active Substance: FLUOXETINE HYDROCHLORIDE
     Dosage: 20 MG
     Dates: start: 2013
  36. VITAMIN CAPSULES [Concomitant]
     Dates: start: 2015
  37. DOXAZOSIN [Concomitant]
     Active Substance: DOXAZOSIN MESYLATE
     Dosage: 4 MG
     Dates: start: 2013
  38. LOSARTAN [Concomitant]
     Active Substance: LOSARTAN
     Dosage: 100 MG
     Dates: start: 2013
  39. LOSARTAN [Concomitant]
     Active Substance: LOSARTAN
     Dosage: TABLET
     Dates: start: 2020
  40. SIMVASTATIN [Concomitant]
     Active Substance: SIMVASTATIN
     Dosage: 20 MG
     Dates: start: 2013
  41. SIMVASTATIN [Concomitant]
     Active Substance: SIMVASTATIN
     Dates: start: 2020
  42. CEFTRIAXONE SODIUM [Concomitant]
     Active Substance: CEFTRIAXONE SODIUM
     Dosage: 10 MG
     Dates: start: 2020

REACTIONS (4)
  - Lenticular opacities [Not Recovered/Not Resolved]
  - Cataract [Unknown]
  - Amino acid level increased [Not Recovered/Not Resolved]
  - Conjunctivitis [Not Recovered/Not Resolved]

NARRATIVE: CASE EVENT DATE: 20130101
